FAERS Safety Report 9184780 (Version 2)
Quarter: 2013Q2

REPORT INFORMATION
  Report Type: Report from Study
  Country: NL (occurrence: NL)
  Receive Date: 20130325
  Receipt Date: 20130408
  Transmission Date: 20140414
  Serious: Yes (Hospitalization)
  Sender: FDA-Public Use
  Company Number: NL-ASTRAZENECA-2013SE17044

PATIENT
  Age: 63 Year
  Sex: Female

DRUGS (5)
  1. ARIMIDEX [Suspect]
     Indication: BREAST CANCER FEMALE
     Route: 048
     Dates: start: 20070109, end: 20130127
  2. CELETRER [Concomitant]
  3. MICARDIPLUS [Concomitant]
  4. AMLODIPINE [Concomitant]
  5. VIT D [Concomitant]

REACTIONS (1)
  - Osteoarthritis [Recovered/Resolved]
